FAERS Safety Report 5325197-0 (Version None)
Quarter: 2007Q2

REPORT INFORMATION
  Report Type: 
  Country: None (occurrence: None)
  Receive Date: 20070515
  Receipt Date: 20070509
  Transmission Date: 20071010
  Serious: Yes (Hospitalization)
  Sender: FDA-Public Use
  Company Number: B0470596A

PATIENT
  Age: 49 Year
  Sex: Female
  Weight: 60 kg

DRUGS (3)
  1. AVANDIA [Suspect]
     Dates: start: 20070319, end: 20070419
  2. GLIMEPIRIDE [Concomitant]
  3. VOGLIBOSE [Concomitant]

REACTIONS (3)
  - ALANINE AMINOTRANSFERASE INCREASED [None]
  - ANOREXIA [None]
  - ASPARTATE AMINOTRANSFERASE INCREASED [None]
